FAERS Safety Report 16761693 (Version 6)
Quarter: 2020Q1

REPORT INFORMATION
  Report Type: Spontaneous
  Country: US (occurrence: US)
  Receive Date: 20190830
  Receipt Date: 20200121
  Transmission Date: 20200409
  Serious: Yes (Other)
  Sender: FDA-Public Use
  Company Number: US-SA-2019SA236510

PATIENT
  Age: 60 Year
  Sex: Female

DRUGS (2)
  1. AUBAGIO [Suspect]
     Active Substance: TERIFLUNOMIDE
     Dosage: 14 MG, QD
     Route: 048
     Dates: start: 20190731
  2. AUBAGIO [Suspect]
     Active Substance: TERIFLUNOMIDE
     Indication: MULTIPLE SCLEROSIS
     Dosage: 14 MG, QD
     Route: 048
     Dates: start: 20181109

REACTIONS (12)
  - Depression [Unknown]
  - Asthenia [Unknown]
  - Paraesthesia [Unknown]
  - Fatigue [Unknown]
  - Vision blurred [Unknown]
  - Mood altered [Unknown]
  - Insomnia [Unknown]
  - Dysphagia [Unknown]
  - Anaemia [Unknown]
  - Diarrhoea [Unknown]
  - Restless legs syndrome [Unknown]
  - Urine output increased [Unknown]

NARRATIVE: CASE EVENT DATE: 2018
